FAERS Safety Report 21445182 (Version 2)
Quarter: 2022Q4

REPORT INFORMATION
  Report Type: Report from Study
  Country: BR (occurrence: BR)
  Receive Date: 20221012
  Receipt Date: 20221012
  Transmission Date: 20230113
  Serious: No
  Sender: FDA-Public Use
  Company Number: BR-JNJFOC-20220962818

PATIENT
  Age: 5 Decade
  Sex: Male
  Weight: 65 kg

DRUGS (1)
  1. INFLIXIMAB [Suspect]
     Active Substance: INFLIXIMAB
     Indication: Crohn^s disease
     Route: 041
     Dates: start: 20200707, end: 202204

REACTIONS (5)
  - Drug ineffective [Unknown]
  - Laboratory test abnormal [Unknown]
  - Pain [Unknown]
  - Neoplasm [Unknown]
  - Diarrhoea [Unknown]
